FAERS Safety Report 4492370-3 (Version None)
Quarter: 2004Q3

REPORT INFORMATION
  Report Type: 
  Country: None (occurrence: None)
  Receive Date: 20040921
  Receipt Date: 20030815
  Transmission Date: 20050211
  Serious: Yes (Hospitalization)
  Sender: FDA-Public Use
  Company Number: 163-20785-03080555

PATIENT
  Age: 61 Year
  Sex: Male
  Weight: 91 kg

DRUGS (15)
  1. THALOMID [Suspect]
     Indication: GLIOBLASTOMA MULTIFORME
     Dosage: 200 MG, QHS, ORAL
     Route: 048
     Dates: start: 20030520
  2. IRINOTECAN          (IRINOTECAN) [Suspect]
     Indication: GLIOBLASTOMA MULTIFORME
     Dosage: 75-150 MG/M2, D1, 8, 22, 29 OF A 42 D CYCLE, INTRAVENOUS
     Route: 042
     Dates: start: 20030520
  3. TOPROL-XL [Concomitant]
  4. COZAAR [Concomitant]
  5. PEPCID [Concomitant]
  6. NEURONTIN [Concomitant]
  7. GLUCOTROL [Concomitant]
  8. GLUCOPHAGE [Concomitant]
  9. FUROSEMIDE          (FUROSEMIDE) [Concomitant]
  10. K-LOR               (POTASSIUM CHLORIDE) (TABLETS) [Concomitant]
  11. ZOFRAN [Concomitant]
  12. LASIX [Concomitant]
  13. DEXAMETHASONE [Concomitant]
  14. REGULAR H INSULIN        (INSULIN HUMAN) [Concomitant]
  15. COUMADIN [Concomitant]

REACTIONS (19)
  - ANAEMIA [None]
  - ASTHENIA [None]
  - CHILLS [None]
  - DEEP VEIN THROMBOSIS [None]
  - FEBRILE NEUTROPENIA [None]
  - HYPOKALAEMIA [None]
  - MYOPATHY STEROID [None]
  - NECK PAIN [None]
  - NEUTROPENIA [None]
  - ODYNOPHAGIA [None]
  - OEDEMA [None]
  - OEDEMA PERIPHERAL [None]
  - OROPHARYNGEAL SWELLING [None]
  - PNEUMONITIS [None]
  - PULMONARY EMBOLISM [None]
  - PYREXIA [None]
  - SINUS TACHYCARDIA [None]
  - SWELLING [None]
  - TOOTH ABSCESS [None]
